FAERS Safety Report 7659709-9 (Version None)
Quarter: 2011Q3

REPORT INFORMATION
  Report Type: 
  Country: None (occurrence: None)
  Receive Date: 20110805
  Receipt Date: 20100820
  Transmission Date: 20111222
  Serious: No
  Sender: FDA-Public Use
  Company Number: US-ABBOTT-10P-163-0665220-00

PATIENT

DRUGS (5)
  1. DEPAKOTE ER [Suspect]
     Indication: ABNORMAL BEHAVIOUR
  2. TOPAMAX [Concomitant]
     Indication: CONVULSION
  3. DILANTIN [Concomitant]
     Indication: CONVULSION
  4. DEPAKOTE ER [Suspect]
     Indication: CONVULSION
     Dates: start: 20060101
  5. CLONAZEPAM [Concomitant]
     Indication: CONVULSION

REACTIONS (1)
  - AMMONIA INCREASED [None]
